FAERS Safety Report 4815028-7 (Version None)
Quarter: 2005Q4

REPORT INFORMATION
  Report Type: 
  Country: None (occurrence: None)
  Receive Date: 20051026
  Receipt Date: 20051011
  Transmission Date: 20060501
  Serious: Yes (Other)
  Sender: FDA-Public Use
  Company Number: FR_051007299

PATIENT
  Age: 78 Year
  Sex: Female

DRUGS (11)
  1. FORTEO [Suspect]
     Indication: OSTEOPOROSIS
     Dosage: 20 UG DAY
     Dates: start: 20050905
  2. DIFRAREL [Concomitant]
  3. CHONDROSULF  (CHONDROITIN SULFATE SODIUM) [Concomitant]
  4. PIASCLEDNE [Concomitant]
  5. OMEPRAZOLE [Concomitant]
  6. FIXICAL (CALCIUM CARBONATE) [Concomitant]
  7. KARDEGIC (ACETYLSALICYLATE LYSINE) [Concomitant]
  8. TRAMADOL HCL [Concomitant]
  9. ACECLOFENAC [Concomitant]
  10. DAFLON (DIOSMIN) [Concomitant]
  11. ZOCOR [Concomitant]

REACTIONS (3)
  - BLOOD PRESSURE INCREASED [None]
  - CONDITION AGGRAVATED [None]
  - VENTRICULAR EXTRASYSTOLES [None]
